FAERS Safety Report 20289242 (Version 3)
Quarter: 2022Q2

REPORT INFORMATION
  Report Type: Spontaneous
  Country: US (occurrence: US)
  Receive Date: 20220104
  Receipt Date: 20220616
  Transmission Date: 20220721
  Serious: No
  Sender: FDA-Public Use
  Company Number: US-LUPIN PHARMACEUTICALS INC.-2021-25959

PATIENT
  Sex: Female

DRUGS (1)
  1. ALBUTEROL SULFATE [Suspect]
     Active Substance: ALBUTEROL SULFATE
     Indication: Bronchial hyperreactivity
     Dosage: UNK, 1 PUFF EVERY 4 TO 6 HOURS

REACTIONS (4)
  - Off label use [Unknown]
  - Product dispensing error [Unknown]
  - Wrong technique in product usage process [Unknown]
  - No adverse event [Unknown]
